FAERS Safety Report 8909316 (Version 2)
Quarter: 2012Q4

REPORT INFORMATION
  Report Type: 
  Country: CO (occurrence: CO)
  Receive Date: 20121114
  Receipt Date: 20121120
  Transmission Date: 20130627
  Serious: Yes (Other)
  Sender: FDA-Public Use
  Company Number: CO-AMGEN-COLSP2012072457

PATIENT
  Age: 62 Year
  Sex: Female

DRUGS (5)
  1. ENBREL [Suspect]
     Indication: RHEUMATOID ARTHRITIS
     Dosage: 25 mg, weekly (PFS)
     Route: 058
     Dates: start: 2006
  2. ENBREL [Suspect]
     Dosage: 50 mg, UNK (Myclick)
     Route: 058
     Dates: start: 201207
  3. METHOTREXATE [Concomitant]
     Indication: RHEUMATOID ARTHRITIS
     Dosage: 4 tablets of 2.5mg, weekly
     Route: 048
     Dates: start: 200002
  4. APRIX [Concomitant]
     Indication: ARTHRALGIA
     Dosage: 500 mg, as needed
     Route: 048
     Dates: start: 2008
  5. FOLIC ACID [Concomitant]
     Indication: IRON DEFICIENCY
     Dosage: 5 mg, UNK
     Route: 065
     Dates: start: 2009

REACTIONS (4)
  - Hip deformity [Not Recovered/Not Resolved]
  - Arthralgia [Not Recovered/Not Resolved]
  - Arthropathy [Not Recovered/Not Resolved]
  - Arthropathy [Not Recovered/Not Resolved]
